FAERS Safety Report 4619895-1 (Version None)
Quarter: 2005Q1

REPORT INFORMATION
  Report Type: 
  Country: None (occurrence: None)
  Receive Date: 20050324
  Receipt Date: 20050308
  Transmission Date: 20050727
  Serious: Yes (Other)
  Sender: FDA-Public Use
  Company Number: 430005M05DEU

PATIENT
  Sex: Female

DRUGS (1)
  1. RALENOVA (MITOXANTRONE HYDROCHLORIDE) [Suspect]
     Dates: start: 20010301, end: 20030601

REACTIONS (1)
  - ACUTE PROMYELOCYTIC LEUKAEMIA [None]
